FAERS Safety Report 8795379 (Version 2)
Quarter: 2012Q4

REPORT INFORMATION
  Report Type: Report from Study
  Country: SN (occurrence: SN)
  Receive Date: 20120917
  Receipt Date: 20121108
  Transmission Date: 20130627
  Serious: Yes (Other)
  Sender: FDA-Public Use
  Company Number: SN-GILEAD-2012-0061090

PATIENT
  Age: 33 Year
  Sex: Female

DRUGS (5)
  1. EMTRICITABINE/TENOFOVIR DISOPROXIL FUMARATE [Suspect]
     Indication: HIV INFECTION
     Dosage: 1 DF, QD
     Route: 048
     Dates: start: 20110308
  2. DARUNAVIR [Suspect]
     Indication: HIV INFECTION
     Dosage: 400 mg, BID
     Route: 048
     Dates: start: 20110308
  3. RITONAVIR [Suspect]
     Indication: HIV INFECTION
     Dosage: 100 mg, QD
     Route: 048
     Dates: start: 20110308
  4. OMEPRAZOLE [Concomitant]
     Indication: DYSPEPSIA
     Dosage: 20 mg, QD
     Route: 048
     Dates: start: 20120905
  5. FOLIC ACID W/IRON [Concomitant]
     Indication: PRODUCT USED FOR UNKNOWN INDICATION
     Dosage: 80 mg, QD
     Route: 048
     Dates: start: 20120905

REACTIONS (1)
  - Foetal death [Not Recovered/Not Resolved]
